FAERS Safety Report 14426216 (Version 2)
Quarter: 2018Q3

REPORT INFORMATION
  Report Type: Report from Study
  Country: US (occurrence: US)
  Receive Date: 20180123
  Receipt Date: 20180817
  Transmission Date: 20181010
  Serious: Yes (Hospitalization)
  Sender: FDA-Public Use
  Company Number: US-ACTELION-A-US2017-162178

PATIENT
  Age: 69 Year
  Sex: Male

DRUGS (4)
  1. ASPIRIN. [Concomitant]
     Active Substance: ASPIRIN
  2. OPSUMIT [Suspect]
     Active Substance: MACITENTAN
     Indication: PULMONARY ARTERIAL HYPERTENSION
     Dosage: 10 MG, UNK
     Route: 048
     Dates: start: 20171107
  3. ADCIRCA [Concomitant]
     Active Substance: TADALAFIL
     Dosage: 40 MG, QD
     Dates: start: 20170915
  4. CELEBREX [Concomitant]
     Active Substance: CELECOXIB

REACTIONS (8)
  - Aspiration [Recovered/Resolved]
  - Transfusion [Unknown]
  - Autoimmune disorder [Unknown]
  - Gastrointestinal haemorrhage [Unknown]
  - Haematemesis [Unknown]
  - Sepsis [Recovered/Resolved]
  - Abdominal pain upper [Unknown]
  - Generalised oedema [Unknown]

NARRATIVE: CASE EVENT DATE: 20180718
